FAERS Safety Report 7273595-0 (Version None)
Quarter: 2011Q1

REPORT INFORMATION
  Report Type: 
  Country: None (occurrence: None)
  Receive Date: 20110203
  Receipt Date: 20101119
  Transmission Date: 20110831
  Serious: No
  Sender: FDA-Public Use
  Company Number: US-ABBOTT-10P-163-0687189-00

PATIENT
  Sex: Male
  Weight: 99.88 kg

DRUGS (7)
  1. SYNTHROID [Suspect]
     Dates: start: 20100101, end: 20100101
  2. LANOXIN [Concomitant]
     Indication: ATRIAL FIBRILLATION
  3. WARFARIN [Concomitant]
     Indication: ATRIAL FIBRILLATION
  4. SYNTHROID [Suspect]
     Indication: HYPOTHYROIDISM
     Dates: start: 20040101, end: 20100101
  5. AVALIDE [Concomitant]
     Indication: HYPERTENSION
  6. SYNTHROID [Suspect]
     Dates: start: 20100101
  7. ZETIA [Concomitant]
     Indication: BLOOD CHOLESTEROL INCREASED

REACTIONS (1)
  - DRUG DISPENSING ERROR [None]
